FAERS Safety Report 9757838 (Version 1)
Quarter: 2013Q4

REPORT INFORMATION
  Report Type: Spontaneous
  Country: DE (occurrence: DE)
  Receive Date: 20131216
  Receipt Date: 20131216
  Transmission Date: 20140711
  Serious: Yes (Hospitalization)
  Sender: FDA-Public Use
  Company Number: DE-AMGEN-DEUSP2013087594

PATIENT
  Age: 72 Year
  Sex: Male

DRUGS (10)
  1. ENBREL [Suspect]
     Indication: PSORIASIS
     Dosage: 50 MG, QWK
     Route: 058
     Dates: start: 20121127
  2. BISOPROLOL [Concomitant]
     Dosage: 10 MG, UNK
  3. TORASEMIDE [Concomitant]
     Dosage: 10 MG, UNK
  4. L-THYROXIN [Concomitant]
     Dosage: 100 UNK, UNK
  5. PANTOPRAZOL [Concomitant]
     Dosage: 20 MG, UNK
  6. SIMVASTATIN [Concomitant]
     Dosage: 20 MG, UNK
  7. ALLOPURINOL [Concomitant]
     Dosage: UNK
  8. LERCANIDIPINE [Concomitant]
     Dosage: 20 MG, UNK
  9. CANDESARTAN [Concomitant]
     Dosage: UNK
  10. DAIVOBET [Concomitant]
     Dosage: UNK

REACTIONS (1)
  - Cataract [Recovered/Resolved]
